FAERS Safety Report 14662078 (Version 4)
Quarter: 2018Q3

REPORT INFORMATION
  Report Type: Report from Study
  Country: CA (occurrence: CA)
  Receive Date: 20180321
  Receipt Date: 20180920
  Transmission Date: 20181010
  Serious: Yes (Hospitalization, Other)
  Sender: FDA-Public Use
  Company Number: CA-BRISTOL-MYERS SQUIBB COMPANY-BMS-2016-108150

PATIENT
  Age: 80 Year
  Sex: Female

DRUGS (2)
  1. ABATACEPT [Suspect]
     Active Substance: ABATACEPT
     Indication: RHEUMATOID ARTHRITIS
     Dosage: 750 MG, Q4WK
     Route: 042
     Dates: start: 20131211
  2. OXYGEN. [Concomitant]
     Active Substance: OXYGEN
     Indication: PRODUCT USED FOR UNKNOWN INDICATION
     Route: 065

REACTIONS (12)
  - Urinary tract infection [Unknown]
  - Pneumonia [Recovering/Resolving]
  - Cervical vertebral fracture [Unknown]
  - Blood pressure diastolic decreased [Unknown]
  - Pulmonary oedema [Unknown]
  - Subcutaneous abscess [Recovering/Resolving]
  - Blister [Unknown]
  - Furuncle [Recovering/Resolving]
  - Gait disturbance [Unknown]
  - Ear discomfort [Unknown]
  - Fall [Unknown]
  - Pain [Not Recovered/Not Resolved]

NARRATIVE: CASE EVENT DATE: 20161215
